FAERS Safety Report 6937480-3 (Version None)
Quarter: 2010Q3

REPORT INFORMATION
  Report Type: 
  Country: None (occurrence: None)
  Receive Date: 20100823
  Receipt Date: 20100823
  Transmission Date: 20110219
  Serious: Yes (Hospitalization, Other)
  Sender: FDA-Public Use
  Company Number: None

PATIENT
  Sex: Male
  Weight: 65.7716 kg

DRUGS (1)
  1. PREDNISONE 20MG MEDCO HEALTH [Suspect]
     Indication: HYPERTENSION
     Dosage: 20MG 1 PO
     Route: 048
     Dates: start: 20090313, end: 20090902

REACTIONS (14)
  - ABASIA [None]
  - BONE DENSITY DECREASED [None]
  - DRUG PRESCRIBING ERROR [None]
  - HERPES ZOSTER [None]
  - HYPOPHAGIA [None]
  - LOOSE TOOTH [None]
  - MUSCLE SPASMS [None]
  - MUSCULAR WEAKNESS [None]
  - PAIN IN EXTREMITY [None]
  - POLLAKIURIA [None]
  - TYPE 2 DIABETES MELLITUS [None]
  - VISION BLURRED [None]
  - VOMITING [None]
  - WRONG DRUG ADMINISTERED [None]
